FAERS Safety Report 4803621-7 (Version None)
Quarter: 2005Q4

REPORT INFORMATION
  Report Type: 
  Country: None (occurrence: None)
  Receive Date: 20051014
  Receipt Date: 20051003
  Transmission Date: 20060501
  Serious: Yes (Other)
  Sender: FDA-Public Use
  Company Number: 2005137125

PATIENT
  Age: 11 Year
  Sex: Female

DRUGS (1)
  1. GENOTONORM (SOMATROPIN) [Suspect]
     Indication: ILL-DEFINED DISORDER
     Dosage: SUBCUTANEOUS
     Route: 058

REACTIONS (3)
  - ABDOMINAL PAIN [None]
  - RENAL NEOPLASM [None]
  - URINARY TRACT INFECTION [None]
